FAERS Safety Report 12270624 (Version 1)
Quarter: 2016Q2

REPORT INFORMATION
  Report Type: Spontaneous
  Country: US (occurrence: None)
  Receive Date: 20160414
  Receipt Date: 20160414
  Transmission Date: 20160815
  Serious: Yes (Death)
  Sender: FDA-Public Use
  Company Number: None

PATIENT
  Age: 65 Year
  Sex: Female
  Weight: 101 kg

DRUGS (2)
  1. ASPIRIN, 81 MG [Suspect]
     Active Substance: ASPIRIN
     Indication: PROPHYLAXIS
     Route: 048
  2. WARFARIN, 3 MG [Suspect]
     Active Substance: WARFARIN SODIUM
     Indication: CEREBROVASCULAR ACCIDENT
     Route: 048

REACTIONS (5)
  - Urinary tract infection [None]
  - Sepsis [None]
  - International normalised ratio increased [None]
  - Cerebral haemorrhage [None]
  - Respiratory arrest [None]

NARRATIVE: CASE EVENT DATE: 20151226
